FAERS Safety Report 6978396-6 (Version None)
Quarter: 2010Q3

REPORT INFORMATION
  Report Type: 
  Country: None (occurrence: None)
  Receive Date: 20100908
  Receipt Date: 20100902
  Transmission Date: 20110219
  Serious: Yes (Other)
  Sender: FDA-Public Use
  Company Number: AE-910-292

PATIENT
  Sex: Male

DRUGS (2)
  1. LIDODERM [Suspect]
     Indication: ARTHRALGIA
     Dosage: 2 PATCHES;
  2. LIDODERM [Suspect]
     Indication: PAIN IN EXTREMITY
     Dosage: 2 PATCHES;

REACTIONS (2)
  - APPLICATION SITE RASH [None]
  - CEREBROVASCULAR ACCIDENT [None]
